FAERS Safety Report 8554003-6 (Version None)
Quarter: 2012Q3

REPORT INFORMATION
  Report Type: 
  Country: None (occurrence: None)
  Receive Date: 20120731
  Receipt Date: 20120726
  Transmission Date: 20120928
  Serious: Yes (Other)
  Sender: FDA-Public Use
  Company Number: JP-BAYER-2012-066364

PATIENT
  Age: 26 Year
  Sex: Female

DRUGS (2)
  1. AVELOX [Suspect]
     Indication: VULVAL LACERATION
     Dosage: 400 MG, QD
     Route: 048
     Dates: start: 20120517, end: 20120517
  2. ACETAMINOPHEN [Suspect]
     Dosage: 400 MG, PRN
     Route: 048

REACTIONS (9)
  - DYSPHONIA [None]
  - SNEEZING [None]
  - RASH [None]
  - PHARYNGEAL OEDEMA [None]
  - ANAPHYLACTIC SHOCK [None]
  - GENERALISED ERYTHEMA [None]
  - DYSPNOEA [None]
  - FACE OEDEMA [None]
  - COUGH [None]
